FAERS Safety Report 8432170-2 (Version None)
Quarter: 2012Q2

REPORT INFORMATION
  Report Type: 
  Country: None (occurrence: None)
  Receive Date: 20120613
  Receipt Date: 20120606
  Transmission Date: 20120825
  Serious: Yes (Hospitalization)
  Sender: FDA-Public Use
  Company Number: PHHY2012DE004006

PATIENT
  Sex: Female

DRUGS (1)
  1. EXTAVIA [Suspect]
     Indication: MULTIPLE SCLEROSIS
     Dosage: 1 ML, QOD
     Route: 058
     Dates: start: 20090904

REACTIONS (6)
  - CHILLS [None]
  - INJECTION SITE INDURATION [None]
  - MULTIPLE SCLEROSIS RELAPSE [None]
  - TYPE 2 DIABETES MELLITUS [None]
  - HEADACHE [None]
  - PYREXIA [None]
